FAERS Safety Report 25012669 (Version 2)
Quarter: 2025Q1

REPORT INFORMATION
  Report Type: Spontaneous
  Country: US (occurrence: US)
  Receive Date: 20250226
  Receipt Date: 20250228
  Transmission Date: 20250409
  Serious: No
  Sender: NOVARTIS
  Company Number: US-002147023-NVSC2025US032783

PATIENT
  Sex: Female

DRUGS (2)
  1. FABHALTA [Suspect]
     Active Substance: IPTACOPAN HYDROCHLORIDE
     Indication: IgA nephropathy
     Dosage: 200 MG, BID
     Route: 048
     Dates: start: 20250220
  2. AMOXICILLIN [Concomitant]
     Active Substance: AMOXICILLIN
     Indication: Product used for unknown indication
     Dosage: 875 MG, BID
     Route: 048

REACTIONS (1)
  - Rash [Unknown]
